FAERS Safety Report 11203876 (Version 1)
Quarter: 2015Q2

REPORT INFORMATION
  Report Type: Spontaneous
  Country: US (occurrence: US)
  Receive Date: 20150619
  Receipt Date: 20150619
  Transmission Date: 20150821
  Serious: Yes (Hospitalization, Other)
  Sender: FDA-Public Use
  Company Number: US-GLAXOSMITHKLINE-US2015GSK084582

PATIENT
  Sex: Female

DRUGS (13)
  1. VIMPAT [Suspect]
     Active Substance: LACOSAMIDE
     Indication: SEIZURE
     Dosage: UNK, U
     Route: 065
     Dates: start: 201407
  2. KLOR-CON [Suspect]
     Active Substance: POTASSIUM CHLORIDE
     Indication: PRODUCT USED FOR UNKNOWN INDICATION
     Dosage: 10 MG, QD
     Route: 065
  3. COREG [Suspect]
     Active Substance: CARVEDILOL
     Indication: CARDIAC DISORDER
     Dosage: 12.5 MG, BID
     Route: 065
     Dates: start: 2011
  4. ATORVASTATIN [Suspect]
     Active Substance: ATORVASTATIN
     Indication: PRODUCT USED FOR UNKNOWN INDICATION
  5. GEMFIBROZIL. [Suspect]
     Active Substance: GEMFIBROZIL
     Indication: BLOOD CHOLESTEROL
     Dosage: 600 MG, QD
     Route: 065
  6. LASIX [Suspect]
     Active Substance: FUROSEMIDE
     Indication: FLUID RETENTION
     Dosage: 20 MG, BID
     Route: 065
  7. LASIX [Suspect]
     Active Substance: FUROSEMIDE
     Indication: CARDIAC FAILURE
  8. DIGITEK [Suspect]
     Active Substance: DIGOXIN
  9. OMEPRAZOLE. [Suspect]
     Active Substance: OMEPRAZOLE
     Indication: PRODUCT USED FOR UNKNOWN INDICATION
     Dosage: 40 MG, BID
     Route: 065
     Dates: start: 2011
  10. METOCHLOPRAMIDE [Suspect]
     Active Substance: METOCLOPRAMIDE HYDROCHLORIDE
     Indication: GASTRIC DISORDER
     Dosage: 5 MG, U
     Route: 065
     Dates: start: 2015
  11. FLUDROCORTISONE [Suspect]
     Active Substance: FLUDROCORTISONE
     Indication: PRODUCT USED FOR UNKNOWN INDICATION
     Dosage: 0.1 MG, EVERY 72 HOURS
     Route: 065
  12. LYRICA [Suspect]
     Active Substance: PREGABALIN
     Indication: ABASIA
     Dosage: 150 MG, BID
     Route: 065
     Dates: start: 2006
  13. PROZAC [Suspect]
     Active Substance: FLUOXETINE HYDROCHLORIDE
     Indication: PRODUCT USED FOR UNKNOWN INDICATION
     Dosage: 20 MG, UNK
     Route: 065
     Dates: start: 2011

REACTIONS (18)
  - Seizure [Recovered/Resolved]
  - Pulmonary thrombosis [Recovered/Resolved]
  - Abasia [Recovered/Resolved]
  - Loss of consciousness [Unknown]
  - Renal failure [Unknown]
  - Cardiac failure congestive [Not Recovered/Not Resolved]
  - Nerve injury [Recovered/Resolved]
  - Gait disturbance [Unknown]
  - Transient ischaemic attack [Unknown]
  - Fall [Not Recovered/Not Resolved]
  - Malaise [Unknown]
  - Cerebrovascular accident [Unknown]
  - Decreased appetite [Unknown]
  - Adverse event [Unknown]
  - Weight decreased [Unknown]
  - Adrenal insufficiency [Not Recovered/Not Resolved]
  - Respiratory failure [Not Recovered/Not Resolved]
  - Nausea [Not Recovered/Not Resolved]

NARRATIVE: CASE EVENT DATE: 2006
